FAERS Safety Report 16615125 (Version 3)
Quarter: 2019Q3

REPORT INFORMATION
  Report Type: Report from Study
  Country: None (occurrence: CO)
  Receive Date: 20190723
  Receipt Date: 20190823
  Transmission Date: 20191004
  Serious: Yes (Hospitalization)
  Sender: FDA-Public Use
  Company Number: CO-ABBVIE-19K-036-2862551-00

PATIENT
  Age: 70 Year
  Sex: Female
  Weight: 55 kg

DRUGS (1)
  1. HUMIRA [Suspect]
     Active Substance: ADALIMUMAB
     Indication: RHEUMATOID ARTHRITIS
     Route: 058
     Dates: start: 20180621, end: 20190703

REACTIONS (9)
  - Diarrhoea [Recovering/Resolving]
  - Vomiting [Not Recovered/Not Resolved]
  - Arthralgia [Not Recovered/Not Resolved]
  - Anaemia [Not Recovered/Not Resolved]
  - Dehydration [Recovering/Resolving]
  - Blood potassium abnormal [Recovering/Resolving]
  - Pyrexia [Not Recovered/Not Resolved]
  - Abdominal pain [Recovering/Resolving]
  - Blood sodium abnormal [Recovering/Resolving]

NARRATIVE: CASE EVENT DATE: 201906
